FAERS Safety Report 9375474 (Version 5)
Quarter: 2014Q2

REPORT INFORMATION
  Report Type: Report from Study
  Country: US (occurrence: US)
  Receive Date: 20130628
  Receipt Date: 20140512
  Transmission Date: 20141212
  Serious: Yes (Hospitalization)
  Sender: FDA-Public Use
  Company Number: US-GLAXOSMITHKLINE-Z0020091A

PATIENT
  Age: 84 Year
  Sex: Male
  Weight: 61.2 kg

DRUGS (2)
  1. PLACEBO [Suspect]
     Indication: ACUTE CORONARY SYNDROME
     Dates: start: 20110901
  2. COREG [Suspect]
     Indication: CORONARY ARTERY DISEASE
     Dosage: 6.25MG TWICE PER DAY
     Route: 048
     Dates: start: 20110819, end: 20130430

REACTIONS (1)
  - Accidental overdose [Recovered/Resolved]
